FAERS Safety Report 6008001-7 (Version None)
Quarter: 2008Q4

REPORT INFORMATION
  Report Type: 
  Country: None (occurrence: None)
  Receive Date: 20081217
  Receipt Date: 20080626
  Transmission Date: 20090506
  Serious: No
  Sender: FDA-Public Use
  Company Number: US-ASTRAZENECA-2008UW12851

PATIENT
  Age: 65 Year
  Sex: Female
  Weight: 90.7 kg

DRUGS (11)
  1. CRESTOR [Suspect]
     Indication: BLOOD CHOLESTEROL INCREASED
     Route: 048
     Dates: start: 20080622
  2. BENICAR [Concomitant]
  3. VERELAN [Concomitant]
  4. CARDURA [Concomitant]
  5. TOPROL-XL [Concomitant]
     Route: 048
  6. POTASSIUM CHLORIDE [Concomitant]
  7. ZYRTEC [Concomitant]
  8. SYNTHROID [Concomitant]
  9. ZOLOFT [Concomitant]
  10. HYDROCODONE BITARTRATE [Concomitant]
  11. ADVAIR DISKUS 250/50 [Concomitant]
     Dosage: 500 - 1 INHALATION QD
     Route: 055

REACTIONS (4)
  - FATIGUE [None]
  - INFLUENZA LIKE ILLNESS [None]
  - MYALGIA [None]
  - PAIN [None]
